FAERS Safety Report 9706756 (Version 1)
Quarter: 2013Q4

REPORT INFORMATION
  Report Type: Report from Study
  Country: AT (occurrence: AT)
  Receive Date: 20131125
  Receipt Date: 20131125
  Transmission Date: 20140711
  Serious: Yes (Other)
  Sender: FDA-Public Use
  Company Number: PHHY2013AT135497

PATIENT
  Sex: 0

DRUGS (1)
  1. NILOTINIB [Suspect]
     Indication: CHRONIC MYELOID LEUKAEMIA
     Dosage: UNK
     Route: 048

REACTIONS (3)
  - Osteoarthritis [Unknown]
  - Huntington^s disease [Unknown]
  - Benign prostatic hyperplasia [Unknown]
